FAERS Safety Report 7334742-5 (Version None)
Quarter: 2011Q1

REPORT INFORMATION
  Report Type: 
  Country: None (occurrence: None)
  Receive Date: 20110307
  Receipt Date: 20110303
  Transmission Date: 20110831
  Serious: Yes (Life-Threatening, Hospitalization, Other)
  Sender: FDA-Public Use
  Company Number: PHHO2010DE06653

PATIENT
  Sex: Male
  Weight: 90.1 kg

DRUGS (19)
  1. JANUVIA [Concomitant]
  2. BLINDED ENALAPRIL [Suspect]
     Dosage: NO TREATMENT
     Dates: start: 20110213, end: 20110215
  3. SPIRIVA [Concomitant]
  4. BLINDED NO TREATMENT RECEIVED [Suspect]
     Dosage: NO TREATMENT
     Dates: start: 20110213, end: 20110215
  5. ALISKIREN [Suspect]
     Indication: CARDIAC FAILURE
     Dosage: UNK
     Route: 048
     Dates: start: 20100412, end: 20100510
  6. COMPARATOR ENALAPRIL [Suspect]
     Indication: CARDIAC FAILURE
     Dosage: UNK
     Route: 048
     Dates: start: 20100220, end: 20100510
  7. BLINDED ENALAPRIL [Suspect]
     Indication: CARDIAC FAILURE
     Dosage: CODE NOT BROKEN
     Route: 048
     Dates: start: 20100511, end: 20110212
  8. BLINDED NO TREATMENT RECEIVED [Suspect]
     Dosage: CODE NOT BROKEN
     Route: 048
     Dates: start: 20110216
  9. AMARYL [Concomitant]
  10. LEVOTHYROXINE SODIUM [Concomitant]
  11. ANTICOAGULANTS [Concomitant]
  12. BLINDED ENALAPRIL [Suspect]
     Dosage: CODE NOT BROKEN
     Route: 048
     Dates: start: 20110216
  13. BLINDED ALISKIREN [Suspect]
     Indication: CARDIAC FAILURE
     Dosage: CODE NOT BROKEN
     Route: 048
     Dates: start: 20100511, end: 20110212
  14. BLINDED NO TREATMENT RECEIVED [Suspect]
     Indication: CARDIAC FAILURE
     Dosage: CODE NOT BROKEN
     Route: 048
     Dates: start: 20100511, end: 20110212
  15. BLINDED ALISKIREN [Suspect]
     Dosage: NO TREATMENT
     Dates: start: 20110213, end: 20110215
  16. BLINDED ALISKIREN [Suspect]
     Dosage: CODE NOT BROKEN
     Route: 048
     Dates: start: 20110216
  17. NEBIVOLOL [Concomitant]
  18. SIMVASTATIN [Concomitant]
  19. SPIRONOLACTONE [Concomitant]

REACTIONS (14)
  - PULMONARY FUNCTION TEST DECREASED [None]
  - HAEMOPTYSIS [None]
  - PYREXIA [None]
  - PNEUMONIA [None]
  - CARDIAC FAILURE [None]
  - CORONARY ARTERY STENOSIS [None]
  - INGUINAL HERNIA, OBSTRUCTIVE [None]
  - PAIN [None]
  - OSTEOARTHRITIS [None]
  - DISEASE PROGRESSION [None]
  - DYSPNOEA [None]
  - ORCHIDECTOMY [None]
  - CHRONIC OBSTRUCTIVE PULMONARY DISEASE [None]
  - HERNIA REPAIR [None]
